FAERS Safety Report 15742529 (Version 1)
Quarter: 2018Q4

REPORT INFORMATION
  Report Type: Spontaneous
  Country: FR (occurrence: FR)
  Receive Date: 20181219
  Receipt Date: 20181219
  Transmission Date: 20190205
  Serious: Yes (Hospitalization, Other)
  Sender: FDA-Public Use
  Company Number: FR-ABBVIE-15P-056-1398950-00

PATIENT
  Age: 24 Year
  Sex: Female
  Weight: 66 kg

DRUGS (17)
  1. LITHIUM. [Concomitant]
     Active Substance: LITHIUM
     Indication: PRODUCT USED FOR UNKNOWN INDICATION
  2. DEPAKINE CHRONO [Suspect]
     Active Substance: VALPROATE SODIUM
     Dosage: 5 DF,QD
     Route: 048
     Dates: start: 200809
  3. DEPAKINE CHRONO [Suspect]
     Active Substance: VALPROATE SODIUM
     Dosage: 4.5 DF
     Route: 065
     Dates: start: 20081104
  4. DEPAKINE CHRONO [Suspect]
     Active Substance: VALPROATE SODIUM
     Dosage: 4 DF,QD;
     Route: 048
     Dates: start: 200812
  5. DEPAKINE CHRONO [Suspect]
     Active Substance: VALPROATE SODIUM
     Indication: EPILEPSY
     Route: 048
     Dates: start: 199305
  6. DEPAKINE CHRONO [Suspect]
     Active Substance: VALPROATE SODIUM
     Route: 065
     Dates: start: 200212
  7. PUREGON [Concomitant]
     Indication: PRODUCT USED FOR UNKNOWN INDICATION
     Dates: start: 2006, end: 2008
  8. DEPAKINE CHRONO [Suspect]
     Active Substance: VALPROATE SODIUM
     Dosage: 500 MG, BID
     Route: 048
     Dates: start: 19960828
  9. DEPAKINE CHRONO [Suspect]
     Active Substance: VALPROATE SODIUM
     Dosage: 3.5 DF,QD
     Route: 048
     Dates: start: 200808
  10. URBANYL [Concomitant]
     Active Substance: CLOBAZAM
     Indication: PRODUCT USED FOR UNKNOWN INDICATION
  11. DEPAKINE CHRONO [Suspect]
     Active Substance: VALPROATE SODIUM
     Route: 065
     Dates: start: 20001130
  12. DEPAKINE CHRONO [Suspect]
     Active Substance: VALPROATE SODIUM
     Route: 065
     Dates: start: 200307
  13. GONAL-F [Concomitant]
     Active Substance: FOLLITROPIN
     Indication: PRODUCT USED FOR UNKNOWN INDICATION
     Dates: start: 2006, end: 2008
  14. OVITRELLE [Concomitant]
     Active Substance: CHORIOGONADOTROPIN ALFA
     Indication: PRODUCT USED FOR UNKNOWN INDICATION
     Dates: start: 2006, end: 2008
  15. DEPAKINE CHRONO [Suspect]
     Active Substance: VALPROATE SODIUM
     Dosage: FLUCTUATED FROM 1.25 G TO 2.25 G DUE TO 2 EPILEPTIC CRISIS
     Route: 048
     Dates: start: 20080308
  16. SPECIAFOLDINE [Concomitant]
     Active Substance: FOLIC ACID
     Indication: PRODUCT USED FOR UNKNOWN INDICATION
  17. DEPAKINE CHRONO [Suspect]
     Active Substance: VALPROATE SODIUM
     Dosage: 1 DF
     Route: 065
     Dates: start: 19980105

REACTIONS (25)
  - Unevaluable event [Unknown]
  - Tongue biting [Unknown]
  - Hallucination, auditory [Unknown]
  - Aggression [Unknown]
  - Epilepsy [Unknown]
  - Decreased appetite [Unknown]
  - Loss of consciousness [Unknown]
  - Abnormal behaviour [Unknown]
  - Seizure [Unknown]
  - Delirium [Unknown]
  - Thinking abnormal [Unknown]
  - Seizure [Unknown]
  - Insomnia [Unknown]
  - Live birth [Unknown]
  - Tremor [Unknown]
  - Epilepsy [Recovered/Resolved]
  - Epilepsy [Unknown]
  - Hallucination, visual [Unknown]
  - Dyspnoea [Unknown]
  - Aggression [Unknown]
  - Petit mal epilepsy [Unknown]
  - Drug level increased [Unknown]
  - Exposure during pregnancy [Unknown]
  - Fatigue [Unknown]
  - Product dose omission [Unknown]

NARRATIVE: CASE EVENT DATE: 199409
